FAERS Safety Report 8189215-7 (Version None)
Quarter: 2012Q1

REPORT INFORMATION
  Report Type: 
  Country: None (occurrence: None)
  Receive Date: 20120306
  Receipt Date: 20120306
  Transmission Date: 20120608
  Serious: Yes (Death)
  Sender: FDA-Public Use
  Company Number: None

PATIENT
  Sex: Female

DRUGS (1)
  1. TEMODAR [Suspect]
     Indication: NEOPLASM MALIGNANT
     Dates: start: 20110307, end: 20111229

REACTIONS (1)
  - DEATH [None]
